FAERS Safety Report 19382446 (Version 2)
Quarter: 2021Q3

REPORT INFORMATION
  Report Type: Spontaneous
  Country: US (occurrence: US)
  Receive Date: 20210607
  Receipt Date: 20210731
  Transmission Date: 20211014
  Serious: Yes (Other)
  Sender: FDA-Public Use
  Company Number: NVSC2021US117584

PATIENT
  Age: 6 Year
  Sex: Female

DRUGS (2)
  1. EVEROLIMUS. [Suspect]
     Active Substance: EVEROLIMUS
     Indication: VENOLYMPHATIC MALFORMATION
     Dosage: UNK
     Route: 065
  2. SIROLIMUS. [Suspect]
     Active Substance: SIROLIMUS
     Indication: VENOLYMPHATIC MALFORMATION
     Dosage: UNK
     Route: 065

REACTIONS (13)
  - Venolymphatic malformation [Unknown]
  - Constipation [Unknown]
  - Product use in unapproved indication [Unknown]
  - Abdominal pain [Unknown]
  - Gastrointestinal disorder [Unknown]
  - Abdominal distension [Unknown]
  - Decreased appetite [Unknown]
  - PIK3CA related overgrowth spectrum [Unknown]
  - Pain [Not Recovered/Not Resolved]
  - Infection [Unknown]
  - Headache [Unknown]
  - Condition aggravated [Unknown]
  - Therapy non-responder [Unknown]
